FAERS Safety Report 16445098 (Version 2)
Quarter: 2019Q3

REPORT INFORMATION
  Report Type: Spontaneous
  Country: PL (occurrence: PL)
  Receive Date: 20190618
  Receipt Date: 20190709
  Transmission Date: 20191004
  Serious: Yes (Death, Hospitalization)
  Sender: FDA-Public Use
  Company Number: PL-ROCHE-2336812

PATIENT
  Age: 92 Year
  Sex: Male
  Weight: 75 kg

DRUGS (15)
  1. PRAXBIND [Suspect]
     Active Substance: IDARUCIZUMAB
     Indication: PROCOAGULANT THERAPY
     Route: 065
     Dates: start: 20190604
  2. ATORVASTEROL [Concomitant]
     Active Substance: ATORVASTATIN
  3. PRADAXA [Suspect]
     Active Substance: DABIGATRAN ETEXILATE MESYLATE
     Indication: ATRIAL FIBRILLATION
  4. LIPANTHYL [Concomitant]
     Active Substance: FENOFIBRATE
  5. PRADAXA [Suspect]
     Active Substance: DABIGATRAN ETEXILATE MESYLATE
     Indication: CEREBROVASCULAR ACCIDENT
     Route: 065
  6. ASA [Concomitant]
     Active Substance: ASPIRIN
  7. TICAGRELOR. [Concomitant]
     Active Substance: TICAGRELOR
  8. OXYCARDIL [Concomitant]
     Active Substance: DILTIAZEM HYDROCHLORIDE
  9. NORMATENS [CLOPAMIDE;DIHYDROERGOCRISTINE MESILATE;RESERPINE] [Concomitant]
  10. METOPROLOL TARTRATE. [Concomitant]
     Active Substance: METOPROLOL TARTRATE
  11. ACTILYSE [Suspect]
     Active Substance: ALTEPLASE
     Indication: ISCHAEMIC STROKE
  12. SPIRONOL [Concomitant]
     Active Substance: SPIRONOLACTONE
  13. ACTILYSE [Suspect]
     Active Substance: ALTEPLASE
     Indication: THROMBOLYSIS
     Route: 065
     Dates: start: 20190604
  14. POLPRAZOL [OMEPRAZOLE] [Concomitant]
     Active Substance: OMEPRAZOLE
  15. MILURIT [Concomitant]
     Active Substance: ALLOPURINOL

REACTIONS (4)
  - Hypertension [Not Recovered/Not Resolved]
  - Ischaemic stroke [Unknown]
  - Haemorrhagic stroke [Fatal]
  - General physical health deterioration [Fatal]

NARRATIVE: CASE EVENT DATE: 20190604
